FAERS Safety Report 9419060 (Version 2)
Quarter: 2013Q4

REPORT INFORMATION
  Report Type: Spontaneous
  Country: TH (occurrence: TH)
  Receive Date: 20130725
  Receipt Date: 20131112
  Transmission Date: 20140711
  Serious: Yes (Death, Hospitalization)
  Sender: FDA-Public Use
  Company Number: PHHY2013TH078892

PATIENT
  Age: 90 Year
  Sex: Female

DRUGS (5)
  1. ACLASTA [Suspect]
     Dosage: UNK UKN, UNK
     Route: 042
     Dates: start: 20130715
  2. AMLODIPINE [Concomitant]
  3. BISOPROLOL [Concomitant]
  4. LOSARTAN [Concomitant]
  5. ZOCOR [Concomitant]

REACTIONS (6)
  - Sepsis [Fatal]
  - Somnolence [Recovering/Resolving]
  - Blood creatine increased [Recovering/Resolving]
  - Fatigue [Recovering/Resolving]
  - White blood cell count increased [Unknown]
  - Platelet count decreased [Unknown]
